FAERS Safety Report 6676210-X (Version None)
Quarter: 2010Q2

REPORT INFORMATION
  Report Type: 
  Country: None (occurrence: None)
  Receive Date: 20100412
  Receipt Date: 20100401
  Transmission Date: 20101027
  Serious: Yes (Other)
  Sender: FDA-Public Use
  Company Number: US-JNJFOC-20100202472

PATIENT
  Age: 68 Year
  Sex: Male

DRUGS (3)
  1. TYLENOL [Suspect]
  2. TYLENOL [Suspect]
     Indication: DRUG USE FOR UNKNOWN INDICATION
  3. ROLAIDS [Concomitant]
     Indication: HYPERCHLORHYDRIA
     Dosage: 2-4 DAILY FOR YEARS

REACTIONS (11)
  - CORONARY ARTERY BYPASS [None]
  - EYE OPERATION [None]
  - GASTRIC DISORDER [None]
  - HEADACHE [None]
  - INFLUENZA LIKE ILLNESS [None]
  - LUNG NEOPLASM MALIGNANT [None]
  - MYOCARDIAL INFARCTION [None]
  - NAUSEA [None]
  - PAIN [None]
  - PRODUCT ODOUR ABNORMAL [None]
  - SURGERY [None]
